FAERS Safety Report 5245830-1 (Version None)
Quarter: 2007Q1

REPORT INFORMATION
  Report Type: 
  Country: None (occurrence: None)
  Receive Date: 20070216
  Receipt Date: 20070205
  Transmission Date: 20070707
  Serious: Yes (Hospitalization)
  Sender: FDA-Public Use
  Company Number: 2007BI002617

PATIENT
  Age: 61 Year
  Sex: Female
  Weight: 52.6173 kg

DRUGS (8)
  1. AVONEX [Suspect]
     Indication: MULTIPLE SCLEROSIS
     Dosage: 30 UG;QW;IM
     Route: 030
     Dates: start: 20031102
  2. AVONEX [Suspect]
     Indication: MULTIPLE SCLEROSIS
     Dosage: 30 UG;QW;IM
     Route: 030
  3. AMANTADINE HCL [Concomitant]
  4. PRILOSEC [Concomitant]
  5. GABAPENTIN [Concomitant]
  6. FLONASE [Concomitant]
  7. ATROVENT [Concomitant]
  8. WELLBUTRIN [Concomitant]

REACTIONS (9)
  - ANAEMIA [None]
  - CHOLELITHIASIS [None]
  - CYSTITIS [None]
  - DIABETES MELLITUS [None]
  - HYPERTENSION [None]
  - INSOMNIA [None]
  - MUSCLE SPASMS [None]
  - NEUROGENIC BLADDER [None]
  - PANCREATITIS [None]
